FAERS Safety Report 10242659 (Version 2)
Quarter: 2014Q2

REPORT INFORMATION
  Report Type: Spontaneous
  Country: IT (occurrence: IT)
  Receive Date: 20140617
  Receipt Date: 20140625
  Transmission Date: 20141212
  Serious: Yes (Other)
  Sender: FDA-Public Use
  Company Number: IT-PFIZER INC-2014163716

PATIENT
  Age: 60 Year
  Sex: Male

DRUGS (4)
  1. VENLAFAXINE HCL [Suspect]
     Dosage: 187.5 DAILY (75MG, 75MG AND 37.5MG 3XDAILY)
     Route: 048
     Dates: start: 20101001
  2. KCL-RETARD [Concomitant]
     Dosage: UNK
  3. LEVOMEPROMAZINE [Concomitant]
     Dosage: UNK
  4. DELORAZEPAM [Concomitant]
     Dosage: UNK

REACTIONS (1)
  - Hyponatraemia [Recovering/Resolving]
